FAERS Safety Report 24617280 (Version 1)
Quarter: 2024Q4

REPORT INFORMATION
  Report Type: Spontaneous
  Country: IL (occurrence: IL)
  Receive Date: 20241114
  Receipt Date: 20241114
  Transmission Date: 20250115
  Serious: Yes (Life-Threatening, Other)
  Sender: ALEXION PHARMACEUTICALS
  Company Number: IL-ASTRAZENECA-202411ISR003856IL

PATIENT
  Age: 70 Year

DRUGS (28)
  1. BRILINTA [Suspect]
     Active Substance: TICAGRELOR
     Dosage: UNK
  2. BRILINTA [Suspect]
     Active Substance: TICAGRELOR
     Dosage: UNK
  3. BRILINTA [Suspect]
     Active Substance: TICAGRELOR
     Dosage: UNK
  4. BRILINTA [Suspect]
     Active Substance: TICAGRELOR
     Dosage: UNK
  5. ASPIRIN [Suspect]
     Active Substance: ASPIRIN
  6. ASPIRIN [Suspect]
     Active Substance: ASPIRIN
     Route: 065
  7. AMLODIPINE [Concomitant]
     Active Substance: AMLODIPINE BESYLATE
     Dosage: 10 MILLIGRAM
  8. AMLODIPINE [Concomitant]
     Active Substance: AMLODIPINE BESYLATE
     Dosage: 10 MILLIGRAM
     Route: 065
  9. METHYLCOBALAMIN [Concomitant]
     Active Substance: METHYLCOBALAMIN
     Dosage: 1000 MICROGRAM
  10. METHYLCOBALAMIN [Concomitant]
     Active Substance: METHYLCOBALAMIN
     Dosage: 1000 MICROGRAM
     Route: 065
  11. BISOPROLOL FUMARATE [Concomitant]
     Active Substance: BISOPROLOL FUMARATE
     Dosage: 5 MILLIGRAM
  12. BISOPROLOL FUMARATE [Concomitant]
     Active Substance: BISOPROLOL FUMARATE
     Dosage: 5 MILLIGRAM
     Route: 065
  13. MEMANTINE HYDROCHLORIDE [Concomitant]
     Active Substance: MEMANTINE HYDROCHLORIDE
     Dosage: 10 MILLIGRAM
  14. MEMANTINE HYDROCHLORIDE [Concomitant]
     Active Substance: MEMANTINE HYDROCHLORIDE
     Dosage: 10 MILLIGRAM
     Route: 065
  15. Ezecor [Concomitant]
     Dosage: 10 MILLIGRAM
  16. Ezecor [Concomitant]
     Dosage: 10 MILLIGRAM
     Route: 065
  17. BASAGLAR [Concomitant]
     Active Substance: INSULIN GLARGINE
     Dosage: UNK, 100 UNIT /1ML
  18. BASAGLAR [Concomitant]
     Active Substance: INSULIN GLARGINE
     Dosage: UNK, 100 UNIT /1ML
     Route: 065
  19. JARDIANCE [Concomitant]
     Active Substance: EMPAGLIFLOZIN
     Dosage: 10 MILLIGRAM
  20. JARDIANCE [Concomitant]
     Active Substance: EMPAGLIFLOZIN
     Dosage: 10 MILLIGRAM
     Route: 065
  21. LIPITOR [Concomitant]
     Active Substance: ATORVASTATIN CALCIUM
     Dosage: 80 MILLIGRAM
  22. LIPITOR [Concomitant]
     Active Substance: ATORVASTATIN CALCIUM
     Dosage: 80 MILLIGRAM
     Route: 065
  23. METFORMIN [Concomitant]
     Active Substance: METFORMIN HYDROCHLORIDE
     Dosage: 850 MILLIGRAM
  24. METFORMIN [Concomitant]
     Active Substance: METFORMIN HYDROCHLORIDE
     Dosage: 850 MILLIGRAM
     Route: 065
  25. OMEPRAZOLE [Concomitant]
     Active Substance: OMEPRAZOLE
     Dosage: 20 MILLIGRAM
  26. OMEPRAZOLE [Concomitant]
     Active Substance: OMEPRAZOLE
     Dosage: 20 MILLIGRAM
     Route: 065
  27. Recital [Concomitant]
     Dosage: 20 MILLIGRAM
  28. Recital [Concomitant]
     Dosage: 20 MILLIGRAM
     Route: 065

REACTIONS (6)
  - Subdural haemorrhage [Unknown]
  - Subarachnoid haemorrhage [Unknown]
  - Confusional state [Unknown]
  - Fall [Unknown]
  - Disorientation [Unknown]
  - Incoherent [Unknown]
